FAERS Safety Report 21719381 (Version 1)
Quarter: 2022Q4

REPORT INFORMATION
  Report Type: Spontaneous
  Country: TW (occurrence: None)
  Receive Date: 20221213
  Receipt Date: 20221213
  Transmission Date: 20230113
  Serious: Yes (Other)
  Sender: FDA-Public Use
  Company Number: TW-ROCHE-3235279

PATIENT
  Sex: Male

DRUGS (11)
  1. RITUXIMAB [Suspect]
     Active Substance: RITUXIMAB
     Indication: Diffuse large B-cell lymphoma
     Dosage: 1ST LINE SYSTEMIC TREATMENT, R-CHOP
     Route: 065
     Dates: start: 20201217, end: 20210702
  2. RITUXIMAB [Suspect]
     Active Substance: RITUXIMAB
     Dosage: 2ND SYSTEMIC TREATMENT, R-ESHAP X 2 CYCLES, PROGRESSIVE DISEASE
     Route: 065
     Dates: start: 20220312, end: 20220420
  3. RITUXIMAB [Suspect]
     Active Substance: RITUXIMAB
     Dosage: 3RD LINE SYSTEMIC TREATMENT, PLOATUZUMAB-BR (BENDAMUSTINE-RITUXIMAB) X 1 CYCLE, REFRACTORY
     Route: 065
     Dates: start: 20220520, end: 20220520
  4. RITUXIMAB [Suspect]
     Active Substance: RITUXIMAB
     Dosage: 4TH LINE SYSTEMIC TREATMENT, R-GEMOX (GEMCITABINE-OXALIPLATIN) X 3 CYCLES, COMPLETE RESPONSE.
     Route: 065
     Dates: start: 20220622, end: 20220801
  5. RITUXIMAB [Suspect]
     Active Substance: RITUXIMAB
     Dosage: 5TH LINE SYSTEMIC TREATMENT, R-BEAM HIGH DOSE CHEMOTHERAPY AND AUTOLOGOUS TRANSPLANTATION
     Route: 065
     Dates: start: 20220829, end: 20220829
  6. POLIVY [Suspect]
     Active Substance: POLATUZUMAB VEDOTIN-PIIQ
     Indication: Diffuse large B-cell lymphoma
     Dosage: 3RD LINE SYSTEMIC TREATMENT, PLOATUZUMAB-BR (BENDAMUSTINE-RITUXIMAB) X 1 CYCLE, REFRACTORY
     Route: 065
     Dates: start: 20220520, end: 20220520
  7. CYCLOPHOSPHAMIDE\DOXORUBICIN\PREDNISONE\VINCRISTINE [Concomitant]
     Active Substance: CYCLOPHOSPHAMIDE\DOXORUBICIN\PREDNISONE\VINCRISTINE
     Indication: Diffuse large B-cell lymphoma
     Dosage: 1ST LINE SYSTEMIC TREATMENT, R-CHOP
     Dates: start: 20201217, end: 20210702
  8. CISPLATIN\CYTARABINE\ETOPOSIDE\METHYLPREDNISOLONE (ESHAP) [Concomitant]
     Active Substance: CISPLATIN\CYTARABINE\ETOPOSIDE\METHYLPREDNISOLONE (ESHAP)
     Indication: Diffuse large B-cell lymphoma
     Dosage: 2ND SYSTEMIC TREATMENT, R-ESHAP X 2 CYCLES, PROGRESSIVE DISEASE
     Dates: start: 20220312, end: 20220420
  9. BEAM [Concomitant]
     Active Substance: SODIUM FLUORIDE
     Indication: Diffuse large B-cell lymphoma
     Dosage: 5TH LINE SYSTEMIC TREATMENT, R-BEAM HIGH DOSE CHEMOTHERAPY AND AUTOLOGOUS TRANSPLANTATION
     Dates: start: 20220829, end: 20220829
  10. BENDAMUSTINE [Concomitant]
     Active Substance: BENDAMUSTINE
     Indication: Diffuse large B-cell lymphoma
     Dosage: 3RD LINE SYSTEMIC TREATMENT, PLOATUZUMAB-BR (BENDAMUSTINE-RITUXIMAB) X 1 CYCLE, REFRACTORY
     Dates: start: 20220520, end: 20220520
  11. GEMCITABINE HYDROCHLORIDE\OXALIPLATIN [Concomitant]
     Active Substance: GEMCITABINE HYDROCHLORIDE\OXALIPLATIN
     Indication: Diffuse large B-cell lymphoma
     Dosage: 4TH LINE SYSTEMIC TREATMENT, R-GEMOX (GEMCITABINE-OXALIPLATIN) X 3 CYCLES, COMPLETE RESPONSE
     Dates: start: 20220622, end: 20220801

REACTIONS (3)
  - Diffuse large B-cell lymphoma recurrent [Unknown]
  - Blood lactate dehydrogenase increased [Unknown]
  - Metastases to liver [Unknown]
